FAERS Safety Report 20619576 (Version 3)
Quarter: 2022Q2

REPORT INFORMATION
  Report Type: Spontaneous
  Country: US (occurrence: US)
  Receive Date: 20220322
  Receipt Date: 20220427
  Transmission Date: 20220721
  Serious: Yes (Hospitalization, Other)
  Sender: FDA-Public Use
  Company Number: US-JNJFOC-20220331372

PATIENT
  Age: 77 Year
  Sex: Male
  Weight: 65.830 kg

DRUGS (2)
  1. OPSUMIT [Suspect]
     Active Substance: MACITENTAN
     Indication: Product used for unknown indication
     Route: 048
     Dates: start: 20210827
  2. SILDENAFIL [Concomitant]
     Active Substance: SILDENAFIL

REACTIONS (3)
  - Fall [Unknown]
  - Traumatic intracranial haemorrhage [Unknown]
  - Catheter placement [Unknown]

NARRATIVE: CASE EVENT DATE: 20220209
